FAERS Safety Report 7043302-5 (Version None)
Quarter: 2010Q4

REPORT INFORMATION
  Report Type: 
  Country: None (occurrence: None)
  Receive Date: 20101013
  Receipt Date: 20100205
  Transmission Date: 20110411
  Serious: No
  Sender: FDA-Public Use
  Company Number: US-ASTRAZENECA-2010SE05372

PATIENT
  Age: 50 Year
  Sex: Male
  Weight: 105.7 kg

DRUGS (10)
  1. SYMBICORT [Suspect]
     Indication: ASTHMA
     Dosage: 640 MICROGRAM
     Route: 055
     Dates: start: 20100101
  2. MAXAIR [Concomitant]
  3. ADVAIR DISKUS 100/50 [Concomitant]
  4. SEROQUEL [Concomitant]
  5. SOMA [Concomitant]
  6. XANAX [Concomitant]
  7. OXYCODONE HCL [Concomitant]
  8. ULTRAM [Concomitant]
  9. LYRICA [Concomitant]
  10. WELLBUTRIN [Concomitant]

REACTIONS (1)
  - DRUG SCREEN POSITIVE [None]
